FAERS Safety Report 24450068 (Version 1)
Quarter: 2024Q4

REPORT INFORMATION
  Report Type: Spontaneous
  Country: ES (occurrence: A1)
  Receive Date: 20241017
  Receipt Date: 20241017
  Transmission Date: 20250114
  Serious: Yes (Other)
  Sender: BRECKENRIDGE PHARMACEUTICAL, INC.
  Company Number: A1-Breckenridge Pharmaceutical, Inc.-2163199

PATIENT
  Sex: Female

DRUGS (7)
  1. DULOXETINE [Suspect]
     Active Substance: DULOXETINE
  2. ESOMEPRAZOLE. [Concomitant]
     Active Substance: ESOMEPRAZOLE MAGNESIUM
  3. VEDOLIZUMAB [Concomitant]
     Active Substance: VEDOLIZUMAB
  4. LACTOBACILLUS ACIDOPHILUS [Concomitant]
     Active Substance: LACTOBACILLUS ACIDOPHILUS
  5. CAPSICIN [Concomitant]
  6. LANSOPRAZOLE [Concomitant]
     Active Substance: LANSOPRAZOLE
  7. FAMOTIDINE [Concomitant]
     Active Substance: FAMOTIDINE

REACTIONS (16)
  - Crohn^s disease [Unknown]
  - Hernia [Unknown]
  - Affective disorder [Unknown]
  - Gastritis [Unknown]
  - Gastric polyps [Unknown]
  - Gastrooesophageal reflux disease [Unknown]
  - Abdominal discomfort [Unknown]
  - Infection [Unknown]
  - Eructation [Unknown]
  - Product prescribing issue [Unknown]
  - Pain [Unknown]
  - Breast discomfort [Unknown]
  - Diarrhoea [Unknown]
  - Defaecation urgency [Unknown]
  - Inappropriate schedule of product administration [Unknown]
  - Sinusitis [Unknown]
